FAERS Safety Report 5574391-2 (Version None)
Quarter: 2007Q4

REPORT INFORMATION
  Report Type: 
  Country: None (occurrence: None)
  Receive Date: 20071227
  Receipt Date: 20071220
  Transmission Date: 20080405
  Serious: Yes (Other)
  Sender: FDA-Public Use
  Company Number: JP-JNJFOC-20071103504

PATIENT
  Sex: Female
  Weight: 75 kg

DRUGS (24)
  1. OLANZAPINE [Suspect]
     Indication: SCHIZOPHRENIA
     Route: 048
  2. THEOLONG [Concomitant]
     Indication: ASTHMA
     Route: 048
  3. ZOTEPINE [Concomitant]
     Route: 048
  4. ZOTEPINE [Concomitant]
     Route: 048
  5. ZOTEPINE [Concomitant]
     Indication: SCHIZOPHRENIA
     Route: 048
  6. RISPERDAL [Concomitant]
     Route: 048
  7. RISPERDAL [Concomitant]
     Route: 048
  8. RISPERDAL [Concomitant]
     Indication: SCHIZOPHRENIA
     Route: 048
  9. ZADITEN [Concomitant]
     Indication: RHINITIS ALLERGIC
     Route: 048
  10. ZADITEN [Concomitant]
     Indication: ASTHMA
     Route: 048
  11. SENNOSIDE [Concomitant]
     Indication: CONSTIPATION
     Route: 048
  12. ALOSENN [Concomitant]
     Indication: CONSTIPATION
     Route: 048
  13. FLUNITRAZEPAM [Concomitant]
     Route: 048
  14. FLUNITRAZEPAM [Concomitant]
     Indication: SCHIZOPHRENIA
     Route: 048
  15. DORAL [Concomitant]
     Indication: SCHIZOPHRENIA
     Route: 048
  16. RINDERON [Concomitant]
     Indication: ECZEMA
     Route: 003
  17. LEVOTOMIN [Concomitant]
     Indication: SCHIZOPHRENIA
     Route: 048
  18. ISOZOL [Concomitant]
     Indication: SCHIZOPHRENIA
     Route: 048
  19. ARIPIPRAZOLE [Concomitant]
     Indication: SCHIZOPHRENIA
     Route: 048
  20. LORAZEPAM [Concomitant]
     Route: 048
  21. LORAZEPAM [Concomitant]
     Indication: SCHIZOPHRENIA
     Route: 048
  22. BROTIZOLAM [Concomitant]
     Indication: SCHIZOPHRENIA
     Route: 048
  23. STAYBAN [Concomitant]
     Route: 003
  24. STAYBAN [Concomitant]
     Indication: ARTHRITIS
     Route: 003

REACTIONS (1)
  - SCHIZOPHRENIA [None]
